FAERS Safety Report 4743188-5 (Version None)
Quarter: 2005Q3

REPORT INFORMATION
  Report Type: 
  Country: None (occurrence: None)
  Receive Date: 20050811
  Receipt Date: 20050729
  Transmission Date: 20060218
  Serious: Yes (Death, Other)
  Sender: FDA-Public Use
  Company Number: 2005070068

PATIENT
  Age: 35 Year
  Sex: Male

DRUGS (5)
  1. GEODON [Suspect]
     Indication: PSYCHOTIC DISORDER
     Dosage: 200 MG (100 MG, 2 IN 1 D), ORAL
     Route: 048
     Dates: start: 20050304, end: 20050401
  2. TOPAMAX [Concomitant]
  3. PERCOCET (OXYCODONE HYDROCHLORIDE, PARACEMATOL) [Concomitant]
  4. ZANTAC [Concomitant]
  5. NAPROXEN [Concomitant]

REACTIONS (1)
  - HEAT STROKE [None]
